FAERS Safety Report 24797582 (Version 1)
Quarter: 2025Q1

REPORT INFORMATION
  Report Type: Spontaneous
  Country: GB (occurrence: GB)
  Receive Date: 20250102
  Receipt Date: 20250102
  Transmission Date: 20250409
  Serious: Yes (Other)
  Sender: HETERO
  Company Number: None

PATIENT
  Age: 77 Year
  Sex: Female

DRUGS (1)
  1. LINEZOLID [Suspect]
     Active Substance: LINEZOLID
     Indication: Chronic obstructive pulmonary disease
     Route: 065
     Dates: start: 20241220, end: 20241223

REACTIONS (7)
  - Eye swelling [Recovering/Resolving]
  - Chest discomfort [Recovering/Resolving]
  - Cough decreased [Recovering/Resolving]
  - Nausea [Recovering/Resolving]
  - Dry mouth [Recovering/Resolving]
  - Abdominal distension [Recovering/Resolving]
  - Product use in unapproved indication [Unknown]

NARRATIVE: CASE EVENT DATE: 20241220
